FAERS Safety Report 16364415 (Version 1)
Quarter: 2019Q2

REPORT INFORMATION
  Report Type: Spontaneous
  Country: US (occurrence: US)
  Receive Date: 20190528
  Receipt Date: 20190528
  Transmission Date: 20190711
  Serious: No
  Sender: FDA-Public Use
  Company Number: US-009507513-1905USA010637

PATIENT
  Age: 36 Year
  Sex: Female

DRUGS (8)
  1. PREGNYL [Suspect]
     Active Substance: CHORIOGONADOTROPIN ALFA
     Indication: INFERTILITY FEMALE
     Dosage: 10000 (UNIT UNKNOWN), AS DIRECTED
     Route: 030
  2. PROGESTERONE. [Concomitant]
     Active Substance: PROGESTERONE
  3. MENOPUR [Concomitant]
     Active Substance: FOLLITROPIN\LUTEINIZING HORMONE
  4. GANIRELIX ACETATE INJECTION [Suspect]
     Active Substance: GANIRELIX ACETATE
     Indication: INFERTILITY FEMALE
     Dosage: AS DIRECTED
     Route: 058
     Dates: start: 20190514
  5. GONAL-F [Concomitant]
     Active Substance: FOLLITROPIN
  6. LEUPROLIDE [Concomitant]
     Active Substance: LEUPROLIDE
  7. LIDOCAINE. [Concomitant]
     Active Substance: LIDOCAINE
  8. ESTRADIOL. [Concomitant]
     Active Substance: ESTRADIOL

REACTIONS (1)
  - Headache [Unknown]

NARRATIVE: CASE EVENT DATE: 20190521
